FAERS Safety Report 9372682 (Version 1)
Quarter: 2013Q2

REPORT INFORMATION
  Report Type: Report from Study
  Country: US (occurrence: US)
  Receive Date: 20130627
  Receipt Date: 20130627
  Transmission Date: 20140414
  Serious: No
  Sender: FDA-Public Use
  Company Number: US-MYLANLABS-2013S1005658

PATIENT
  Sex: Male

DRUGS (8)
  1. CLOZAPINE TABLETS [Suspect]
     Indication: PSYCHOTIC DISORDER
     Route: 048
     Dates: start: 201012, end: 20130305
  2. TYLENOL [Concomitant]
     Route: 048
  3. ASA [Concomitant]
     Route: 048
  4. DEPAKOTE ER [Concomitant]
     Route: 048
  5. COLACE [Concomitant]
     Route: 048
  6. SYNTHROID [Concomitant]
     Route: 048
  7. LITHIUM [Concomitant]
     Route: 048
  8. MULTIVITAMIN [Concomitant]
     Route: 048

REACTIONS (2)
  - Drooling [Not Recovered/Not Resolved]
  - Fall [Not Recovered/Not Resolved]
